FAERS Safety Report 24944226 (Version 1)
Quarter: 2025Q1

REPORT INFORMATION
  Report Type: Report from Study
  Country: CA (occurrence: CA)
  Receive Date: 20250207
  Receipt Date: 20250207
  Transmission Date: 20250409
  Serious: Yes (Hospitalization)
  Sender: AMGEN
  Company Number: CA-BEH-2025194315

PATIENT
  Age: 64 Year
  Sex: Male

DRUGS (1)
  1. AVACOPAN [Suspect]
     Active Substance: AVACOPAN
     Indication: Antineutrophil cytoplasmic antibody
     Dosage: 30 MG, BID
     Route: 048
     Dates: start: 20241226, end: 20250110

REACTIONS (1)
  - General physical health deterioration [Unknown]
